FAERS Safety Report 9520205 (Version 1)
Quarter: 2013Q3

REPORT INFORMATION
  Report Type: Spontaneous
  Country: US (occurrence: US)
  Receive Date: 20130912
  Receipt Date: 20130912
  Transmission Date: 20140515
  Serious: No
  Sender: FDA-Public Use
  Company Number: US-MUTUAL PHARMACEUTICAL COMPANY, INC.-BCTM20130033

PATIENT
  Age: 56 Year
  Sex: Female
  Weight: 72.64 kg

DRUGS (4)
  1. SULFAMETHOXAZOLE AND TRIMETHOPRIM 800 MG/ 160 MG [Suspect]
     Indication: ANTIBIOTIC PROPHYLAXIS
     Route: 048
     Dates: start: 20130213, end: 20130221
  2. CLONAZEPAM [Suspect]
     Indication: SLEEP DISORDER THERAPY
     Route: 048
  3. CLONAZEPAM [Suspect]
     Route: 048
     Dates: start: 201303
  4. LEVOTHYROXINE [Concomitant]
     Indication: HYPOTHYROIDISM
     Route: 048

REACTIONS (13)
  - Muscle twitching [Not Recovered/Not Resolved]
  - Pain in extremity [Recovered/Resolved]
  - Back pain [Recovered/Resolved]
  - Bowel movement irregularity [Recovered/Resolved]
  - Malaise [Recovered/Resolved]
  - Drug hypersensitivity [None]
  - Rash [Recovered/Resolved]
  - Chills [Recovered/Resolved]
  - Serum sickness [Recovered/Resolved]
  - Pyrexia [Recovered/Resolved]
  - Myalgia [Recovered/Resolved]
  - Arthralgia [Not Recovered/Not Resolved]
  - Abdominal discomfort [Recovered/Resolved]
